FAERS Safety Report 6119672-9 (Version None)
Quarter: 2009Q1

REPORT INFORMATION
  Report Type: 
  Country: None (occurrence: None)
  Receive Date: 20090316
  Receipt Date: 20090311
  Transmission Date: 20090719
  Serious: Yes (Hospitalization)
  Sender: FDA-Public Use
  Company Number: US-ASTRAZENECA-2008UW22595

PATIENT
  Age: 578 Month
  Sex: Female
  Weight: 127 kg

DRUGS (5)
  1. SEROQUEL [Suspect]
     Indication: SCHIZOPHRENIA
     Dosage: 25-300MG
     Route: 048
     Dates: start: 20040611
  2. SEROQUEL [Suspect]
     Indication: DEPRESSION
     Dosage: 25-300MG
     Route: 048
     Dates: start: 20040611
  3. HALDOL [Concomitant]
  4. ZYPREXA [Concomitant]
     Dates: start: 19980326, end: 20031205
  5. WELLBUTRIN [Concomitant]
     Dates: start: 20030101

REACTIONS (2)
  - DIABETES MELLITUS [None]
  - SHOCK HYPOGLYCAEMIC [None]
